FAERS Safety Report 8014879-8 (Version None)
Quarter: 2011Q4

REPORT INFORMATION
  Report Type: 
  Country: None (occurrence: None)
  Receive Date: 20111229
  Receipt Date: 20111227
  Transmission Date: 20120403
  Serious: Yes (Other)
  Sender: FDA-Public Use
  Company Number: US-PFIZER INC-2011314358

PATIENT
  Sex: Female

DRUGS (4)
  1. BONIVA [Concomitant]
     Indication: OSTEOPOROSIS
     Dosage: UNK
  2. SIMVASTATIN [Concomitant]
     Dosage: UNK
  3. GENOTROPIN [Suspect]
     Dosage: UNK
     Dates: start: 20111001
  4. EVISTA [Concomitant]
     Indication: OSTEOPOROSIS
     Dosage: UNK

REACTIONS (1)
  - CARPAL TUNNEL SYNDROME [None]
